FAERS Safety Report 9414243 (Version 1)
Quarter: 2013Q3

REPORT INFORMATION
  Report Type: Spontaneous
  Country: US (occurrence: US)
  Receive Date: 20130723
  Receipt Date: 20130723
  Transmission Date: 20140515
  Serious: No
  Sender: FDA-Public Use
  Company Number: US-PFIZER INC-2013213721

PATIENT
  Age: 71 Year
  Sex: Female

DRUGS (3)
  1. NEURONTIN [Suspect]
     Dosage: 900 MG, 3X/DAY
  2. AMITRIPTYLINE [Concomitant]
     Dosage: 20 MG, 1X/DAY AT NIGHT
     Route: 048
  3. ASPIRIN [Concomitant]
     Dosage: 162 MG, 1X/DAY
     Route: 048

REACTIONS (3)
  - Nasal congestion [Unknown]
  - Cough [Recovering/Resolving]
  - Ear discomfort [Unknown]
